FAERS Safety Report 23463648 (Version 3)
Quarter: 2024Q1

REPORT INFORMATION
  Report Type: Spontaneous
  Country: CZ (occurrence: CZ)
  Receive Date: 20240131
  Receipt Date: 20240313
  Transmission Date: 20240410
  Serious: Yes (Hospitalization, Other)
  Sender: FDA-Public Use
  Company Number: CZ-ABBVIE-5611503

PATIENT
  Sex: Male
  Weight: 66 kg

DRUGS (6)
  1. UPADACITINIB [Suspect]
     Active Substance: UPADACITINIB
     Indication: Colitis ulcerative
     Dosage: 45 MILLIGRAM
     Route: 048
     Dates: start: 20240110
  2. MEDROL [Concomitant]
     Active Substance: METHYLPREDNISOLONE
     Indication: Product used for unknown indication
     Dosage: 16 OR 8 MILLIGRAMS
     Route: 048
  3. MEDROL [Concomitant]
     Active Substance: METHYLPREDNISOLONE
     Indication: Product used for unknown indication
     Dosage: 16 OR 8 MILLIGRAMS
  4. METHOTREXATE SODIUM [Concomitant]
     Active Substance: METHOTREXATE SODIUM
     Indication: Product used for unknown indication
     Route: 058
  5. URSODIOL [Concomitant]
     Active Substance: URSODIOL
     Indication: Product used for unknown indication
  6. PREDNISONE [Concomitant]
     Active Substance: PREDNISONE
     Indication: Product used for unknown indication

REACTIONS (16)
  - Pulmonary sepsis [Recovered/Resolved]
  - Hypotension [Unknown]
  - Inflammatory marker increased [Recovering/Resolving]
  - Loss of consciousness [Recovered/Resolved]
  - Dehydration [Unknown]
  - Acute kidney injury [Unknown]
  - Vomiting [Recovered/Resolved]
  - Diarrhoea [Unknown]
  - Sinus tachycardia [Unknown]
  - Syncope [Recovered/Resolved]
  - Asthenia [Unknown]
  - Lung infiltration [Unknown]
  - Arthralgia [Unknown]
  - Chills [Unknown]
  - Pneumonia [Unknown]
  - Unevaluable event [Unknown]

NARRATIVE: CASE EVENT DATE: 20240101
